FAERS Safety Report 19299229 (Version 1)
Quarter: 2021Q2

REPORT INFORMATION
  Report Type: Spontaneous
  Country: US (occurrence: US)
  Receive Date: 20210524
  Receipt Date: 20210524
  Transmission Date: 20210717
  Serious: Yes (Other)
  Sender: FDA-Public Use
  Company Number: US-PFIZER INC-2021554665

PATIENT
  Sex: Female
  Weight: 78.47 kg

DRUGS (1)
  1. PREMARIN [Suspect]
     Active Substance: ESTROGENS, CONJUGATED
     Dosage: 1.25 MG, DAILY
     Route: 048

REACTIONS (6)
  - Spinal osteoarthritis [Not Recovered/Not Resolved]
  - Intentional product misuse [Unknown]
  - Illness [Not Recovered/Not Resolved]
  - Body height decreased [Unknown]
  - Migraine [Not Recovered/Not Resolved]
  - Vomiting [Unknown]
